FAERS Safety Report 25931942 (Version 1)
Quarter: 2025Q4

REPORT INFORMATION
  Report Type: Spontaneous
  Country: US (occurrence: US)
  Receive Date: 20251016
  Receipt Date: 20251016
  Transmission Date: 20260117
  Serious: No
  Sender: BRACCO
  Company Number: US-BRACCO-2025US04930

PATIENT
  Age: 63 Year
  Sex: Female

DRUGS (1)
  1. VUEWAY [Suspect]
     Active Substance: GADOPICLENOL
     Indication: Magnetic resonance imaging head
     Dosage: 7.5 ML, SINGLE
     Route: 042
     Dates: start: 20250716, end: 20250716

REACTIONS (3)
  - Cough [Recovered/Resolved]
  - Throat clearing [Recovered/Resolved]
  - Dysphagia [Recovered/Resolved]

NARRATIVE: CASE EVENT DATE: 20250716
